FAERS Safety Report 13978308 (Version 1)
Quarter: 2017Q3

REPORT INFORMATION
  Report Type: Spontaneous
  Country: US (occurrence: US)
  Receive Date: 20170915
  Receipt Date: 20170915
  Transmission Date: 20171128
  Serious: Yes (Hospitalization, Other)
  Sender: FDA-Public Use
  Company Number: US-ASTELLAS-2017US036476

PATIENT
  Age: 21 Year
  Sex: Male

DRUGS (7)
  1. TACROLIMUS. [Suspect]
     Active Substance: TACROLIMUS
     Indication: RENAL TRANSPLANT
     Dosage: UNK UNK, UNKNOWN FREQ.
     Route: 065
  2. ABACAVIR. [Concomitant]
     Active Substance: ABACAVIR
     Indication: HIV INFECTION
     Dosage: UNK UNK, UNKNOWN FREQ.
     Route: 065
  3. RILPIVIRINE [Concomitant]
     Active Substance: RILPIVIRINE
     Indication: HIV INFECTION
     Dosage: UNK UNK, UNKNOWN FREQ.
     Route: 065
  4. VALGANCICLOVIR. [Concomitant]
     Active Substance: VALGANCICLOVIR
     Indication: ANTIVIRAL PROPHYLAXIS
     Dosage: UNK UNK, UNKNOWN FREQ. (FOR 3 MONTHS)
     Route: 065
  5. MYCOPHENOLATE MOFETIL. [Suspect]
     Active Substance: MYCOPHENOLATE MOFETIL
     Indication: RENAL TRANSPLANT
     Dosage: UNK UNK, UNKNOWN FREQ.
     Route: 065
  6. ANTITHYMOCYTE IMMUNOGLOBULIN [Concomitant]
     Active Substance: THYMOCYTE IMMUNE GLOBULIN NOS
     Indication: RENAL TRANSPLANT
     Dosage: 1.5 MG/KG (4 DOSES), UNKNOWN FREQ.
     Route: 065
  7. DOLUTEGRAVIR [Concomitant]
     Active Substance: DOLUTEGRAVIR
     Indication: HIV INFECTION
     Dosage: UNK UNK, UNKNOWN FREQ.
     Route: 065

REACTIONS (12)
  - Nephrostomy [Unknown]
  - Nephrectomy [Unknown]
  - Hydronephrosis [Unknown]
  - Leukopenia [Unknown]
  - Diarrhoea [Unknown]
  - Acute kidney injury [Unknown]
  - Transplant rejection [Unknown]
  - Renal infarct [Unknown]
  - Renal vascular thrombosis [Unknown]
  - Hyperkalaemia [Unknown]
  - Colitis [Unknown]
  - Aspergillus infection [Recovered/Resolved]
